FAERS Safety Report 10786111 (Version 4)
Quarter: 2015Q1

REPORT INFORMATION
  Report Type: Report from Study
  Country: BR (occurrence: BR)
  Receive Date: 20150211
  Receipt Date: 20150303
  Transmission Date: 20150721
  Serious: Yes (Other)
  Sender: FDA-Public Use
  Company Number: PHHY2015BR015417

PATIENT
  Sex: Female

DRUGS (8)
  1. ENABLEX [Suspect]
     Active Substance: DARIFENACIN\DARIFENACIN HYDROBROMIDE
     Dosage: 2 DF, QD (2 TABLETS (EACH OF 15 MG), PER DAY)
     Route: 048
     Dates: start: 2011
  2. OXYBUTYNIN [Concomitant]
     Active Substance: OXYBUTYNIN
     Indication: HYPERTONIC BLADDER
     Dosage: 2 DF, QD
     Route: 048
     Dates: start: 2010, end: 2010
  3. ENABLEX [Suspect]
     Active Substance: DARIFENACIN\DARIFENACIN HYDROBROMIDE
     Indication: HYPERTONIC BLADDER
     Dosage: 2 DF, QD (2 TABLETS (EACH OF 7 MG), PER DAY)
     Route: 048
     Dates: start: 2010, end: 2011
  4. ZELMAC [Suspect]
     Active Substance: TEGASEROD
     Indication: GASTROINTESTINAL MOTILITY DISORDER
     Dosage: 2 DF, QD (1 DOSE FORM IN THEMORNING AND 1 AFTER LUNCH)
     Route: 048
     Dates: start: 1998
  5. ZELMAC [Suspect]
     Active Substance: TEGASEROD
     Indication: DYSPEPSIA
  6. UROPAC [Concomitant]
     Active Substance: NITROFURANTOIN\PHENAZOPYRIDINE HYDROCHLORIDE\SULFAMETHOXYPYRIDAZINE
     Indication: HYPERTONIC BLADDER
     Dosage: 2 DF, QD
     Route: 048
  7. ENABLEX [Suspect]
     Active Substance: DARIFENACIN\DARIFENACIN HYDROBROMIDE
     Dosage: 1 DF, BID (1 TABLET (EACH OF 15 MG)
     Route: 065
     Dates: start: 2011
  8. ENABLEX [Suspect]
     Active Substance: DARIFENACIN\DARIFENACIN HYDROBROMIDE
     Dosage: 7 MG, UNK
     Route: 065
     Dates: end: 2011

REACTIONS (7)
  - Drug ineffective [Unknown]
  - Drug prescribing error [Unknown]
  - Inappropriate schedule of drug administration [Unknown]
  - Hypertonic bladder [Recovering/Resolving]
  - Headache [Unknown]
  - Retching [Unknown]
  - Bladder dysfunction [Unknown]

NARRATIVE: CASE EVENT DATE: 2011
